FAERS Safety Report 9690587 (Version 2)
Quarter: 2013Q4

REPORT INFORMATION
  Report Type: Spontaneous
  Country: JP (occurrence: JP)
  Receive Date: 20131115
  Receipt Date: 20131206
  Transmission Date: 20140711
  Serious: Yes (Other)
  Sender: FDA-Public Use
  Company Number: JP-ASTRAZENECA-2013SE82160

PATIENT
  Age: 25 Year
  Sex: Male
  Weight: 64 kg

DRUGS (9)
  1. PROPOFOL (NON AZ PRODUCT) [Suspect]
     Indication: GENERAL ANAESTHESIA
     Route: 042
  2. LAUGHING GAS [Concomitant]
     Indication: INDUCTION AND MAINTENANCE OF ANAESTHESIA
     Dosage: AT THE INDUCTION: 4 L/MIN AT THE MAINTENANCE: 3 L/MIN
     Route: 055
  3. OXYGEN [Concomitant]
     Indication: INDUCTION AND MAINTENANCE OF ANAESTHESIA
     Dosage: AT THE INDUCTION: 3 L/MIN AT THE MAINTENANCE: 2 L/MIN
     Route: 055
  4. SEVOFLURANE [Concomitant]
     Indication: INDUCTION AND MAINTENANCE OF ANAESTHESIA
     Dosage: AT THE INDUCTION: SEVOFLURANE 5% AT THE MAINTENANCE: SEVOFLURANE 2%
     Route: 055
  5. VECURONIUM BROMIDE [Concomitant]
  6. RISPERDAL [Concomitant]
     Dosage: DOSE UNKNOWN
     Route: 048
  7. TASMOLIN [Concomitant]
     Dosage: DOSE UNKNOWN
     Route: 048
  8. NEULEPTIL [Concomitant]
     Dosage: DOSE UNKNOWN
     Route: 048
  9. LUVOX [Concomitant]
     Dosage: DOSE UNKNOWN
     Route: 048

REACTIONS (5)
  - Glossoptosis [Recovered/Resolved]
  - Obstructive airways disorder [Recovered/Resolved]
  - Therapeutic response prolonged [Recovered/Resolved]
  - Oxygen saturation decreased [Recovered/Resolved]
  - Heart rate decreased [Recovered/Resolved]
